FAERS Safety Report 5452265-5 (Version None)
Quarter: 2007Q3

REPORT INFORMATION
  Report Type: 
  Country: None (occurrence: None)
  Receive Date: 20070912
  Receipt Date: 20070912
  Transmission Date: 20080115
  Serious: Yes (Death)
  Sender: FDA-Public Use
  Company Number: None

PATIENT
  Age: 59 Year
  Sex: Female
  Weight: 90 kg

DRUGS (1)
  1. ABRAXANE [Suspect]
     Indication: BREAST CANCER METASTATIC
     Dosage: 244 MG -125 MG/M2-  WEEKLY  IV
     Route: 042
     Dates: start: 20070809, end: 20070809

REACTIONS (10)
  - ASTHENIA [None]
  - DYSURIA [None]
  - HEART RATE INCREASED [None]
  - HEPATIC FAILURE [None]
  - MENTAL STATUS CHANGES [None]
  - OEDEMA PERIPHERAL [None]
  - OESOPHAGEAL VARICES HAEMORRHAGE [None]
  - PAIN IN EXTREMITY [None]
  - RASH [None]
  - RESPIRATORY RATE INCREASED [None]
